FAERS Safety Report 5362631-4 (Version None)
Quarter: 2007Q2

REPORT INFORMATION
  Report Type: 
  Country: None (occurrence: None)
  Receive Date: 20070530
  Receipt Date: 20070209
  Transmission Date: 20071010
  Serious: No
  Sender: FDA-Public Use
  Company Number: 2007PV029995

PATIENT
  Age: 75 Year
  Sex: Male

DRUGS (1)
  1. BYETTA [Suspect]
     Indication: DRUG USE FOR UNKNOWN INDICATION
     Dosage: 5 MCG;BID;SC
     Route: 058
     Dates: start: 20070101, end: 20070109

REACTIONS (3)
  - ERYTHEMA [None]
  - HERPES ZOSTER [None]
  - INJECTION SITE ERYTHEMA [None]
